FAERS Safety Report 6275400-8 (Version None)
Quarter: 2009Q3

REPORT INFORMATION
  Report Type: 
  Country: None (occurrence: None)
  Receive Date: 20090721
  Receipt Date: 20090708
  Transmission Date: 20100115
  Serious: Yes (Other)
  Sender: FDA-Public Use
  Company Number: GB-ELI_LILLY_AND_COMPANY-GB200906000297

PATIENT
  Sex: Female
  Weight: 52 kg

DRUGS (5)
  1. FORTEO [Suspect]
     Indication: OSTEOPOROSIS
     Dosage: 20 UG, DAILY (1/D)
     Route: 058
     Dates: start: 20090429, end: 20090528
  2. LEVOTHYROXINE SODIUM [Concomitant]
     Dosage: 100 UG, UNKNOWN
     Route: 048
  3. PARACETAMOL [Concomitant]
     Dosage: 1 G, UNKNOWN
     Route: 048
  4. ADCAL D3 [Concomitant]
     Dosage: UNK, UNKNOWN
     Route: 065
  5. LACTULOSE [Concomitant]
     Dosage: UNK, UNKNOWN
     Route: 065

REACTIONS (4)
  - ARTHRALGIA [None]
  - DIZZINESS [None]
  - HEADACHE [None]
  - LUNG NEOPLASM MALIGNANT [None]
